FAERS Safety Report 6527632-9 (Version None)
Quarter: 2010Q1

REPORT INFORMATION
  Report Type: 
  Country: None (occurrence: None)
  Receive Date: 20100105
  Receipt Date: 20091228
  Transmission Date: 20100710
  Serious: Yes (Death)
  Sender: FDA-Public Use
  Company Number: FR-PFIZER INC-2009315330

PATIENT
  Age: 58 Year
  Sex: Female

DRUGS (5)
  1. SOLU-MEDROL [Suspect]
     Indication: CHEMOTHERAPY
     Dosage: UNK
     Route: 042
     Dates: start: 20091009, end: 20091009
  2. OXALIPLATIN [Suspect]
     Indication: CHEMOTHERAPY
     Dosage: 105 MG, SINGLE
     Route: 042
     Dates: start: 20091009, end: 20091009
  3. ELVORINE [Suspect]
     Indication: CHEMOTHERAPY
     Dosage: 330 MG, 1X/DAY
     Route: 042
     Dates: start: 20091009, end: 20091009
  4. ZOPHREN [Suspect]
     Indication: ANTIEMETIC SUPPORTIVE CARE
     Dosage: UNK
     Route: 042
     Dates: start: 20091009, end: 20091009
  5. FLUOROURACIL [Concomitant]
     Dosage: 660 MG+1980 MG ONCE A DAY
     Route: 042
     Dates: start: 20091009, end: 20091009

REACTIONS (2)
  - COOMBS POSITIVE HAEMOLYTIC ANAEMIA [None]
  - DISSEMINATED INTRAVASCULAR COAGULATION [None]
